FAERS Safety Report 4517027-1 (Version None)
Quarter: 2005Q1

REPORT INFORMATION
  Report Type: 
  Country: None (occurrence: None)
  Receive Date: 20041029
  Receipt Date: 20040928
  Transmission Date: 20050727
  Serious: No
  Sender: FDA-Public Use
  Company Number: 2004-120694-NL

PATIENT
  Age: 40 Year
  Sex: Female
  Weight: 53.1 kg

DRUGS (7)
  1. NUVARING [Suspect]
     Indication: CONTRACEPTION
     Dosage: DF DAILY VAGINAL
     Route: 067
     Dates: start: 20040908
  2. NUVARING [Suspect]
     Indication: MENSTRUATION IRREGULAR
     Dosage: DF DAILY VAGINAL
     Route: 067
     Dates: start: 20040908
  3. ZOLOFT [Concomitant]
  4. SEROQUEL [Concomitant]
  5. MULTI-VITAMINS [Concomitant]
  6. VITAMIN C [Concomitant]
  7. VITAMIN B COMPLEX CAP [Concomitant]

REACTIONS (5)
  - DEPRESSION [None]
  - FATIGUE [None]
  - HYPERTROPHY BREAST [None]
  - INCREASED APPETITE [None]
  - LISTLESS [None]
